FAERS Safety Report 25505705 (Version 1)
Quarter: 2025Q3

REPORT INFORMATION
  Report Type: Spontaneous
  Country: US (occurrence: None)
  Receive Date: 20250702
  Receipt Date: 20250702
  Transmission Date: 20251020
  Serious: Yes (Other)
  Sender: FDA-CTU
  Company Number: None

PATIENT
  Age: 56 Year
  Sex: Female
  Weight: 94 kg

DRUGS (5)
  1. ZOLMITRIPTAN [Suspect]
     Active Substance: ZOLMITRIPTAN
     Indication: Migraine
     Dosage: FREQUENCY : DAILY;?
     Route: 048
     Dates: start: 20210625, end: 20210725
  2. SUMATRIPTAN [Suspect]
     Active Substance: SUMATRIPTAN
     Indication: Migraine
     Dosage: FREQUENCY : DAILY;?
     Route: 048
     Dates: start: 20190513, end: 20190613
  3. ZOLMIPTRIPTAN [Concomitant]
     Active Substance: ZOLMITRIPTAN
     Dates: start: 20210625, end: 20210725
  4. SUMATRIPTAN [Concomitant]
     Active Substance: SUMATRIPTAN
     Dates: start: 20190513, end: 20190613
  5. NARATRIPTAN HYDROCHLORIDE [Concomitant]
     Active Substance: NARATRIPTAN HYDROCHLORIDE
     Dates: start: 20250313, end: 20250413

REACTIONS (1)
  - Treatment failure [None]

NARRATIVE: CASE EVENT DATE: 20250627
